FAERS Safety Report 4906678-8 (Version None)
Quarter: 2006Q1

REPORT INFORMATION
  Report Type: 
  Country: None (occurrence: None)
  Receive Date: 20060209
  Receipt Date: 20051215
  Transmission Date: 20060701
  Serious: Yes (Other)
  Sender: FDA-Public Use
  Company Number: 2006AP00566

PATIENT
  Age: 8400 Day
  Sex: Female

DRUGS (5)
  1. ANAPEINE [Suspect]
     Indication: EPIDURAL ANAESTHESIA
     Route: 008
     Dates: start: 20051127, end: 20051129
  2. FENTANEST [Suspect]
     Indication: EPIDURAL ANAESTHESIA
     Route: 008
     Dates: start: 20051127, end: 20051129
  3. DROLEPTAN [Suspect]
     Indication: EPIDURAL ANAESTHESIA
     Route: 008
     Dates: start: 20051127, end: 20051129
  4. PROPOFOL [Concomitant]
     Indication: GENERAL ANAESTHESIA
     Route: 042
     Dates: start: 20051127, end: 20051127
  5. SEISHOKU [Concomitant]
     Route: 008
     Dates: start: 20051127, end: 20051129

REACTIONS (6)
  - DYSLALIA [None]
  - HYPOGLOSSAL NERVE DISORDER [None]
  - MOVEMENT DISORDER [None]
  - MUSCULOSKELETAL STIFFNESS [None]
  - PARAESTHESIA ORAL [None]
  - TONGUE PARALYSIS [None]
